FAERS Safety Report 8428859-1 (Version None)
Quarter: 2012Q2

REPORT INFORMATION
  Report Type: 
  Country: None (occurrence: None)
  Receive Date: 20120612
  Receipt Date: 20120604
  Transmission Date: 20120825
  Serious: Yes (Disabling, Other)
  Sender: FDA-Public Use
  Company Number: CA-UCBSA-046460

PATIENT
  Age: 64 Year
  Sex: Female
  Weight: 165.1 kg

DRUGS (3)
  1. CIMZIA [Suspect]
     Route: 058
     Dates: start: 20110712, end: 20110809
  2. CIMZIA [Suspect]
     Indication: RHEUMATOID ARTHRITIS
     Route: 058
     Dates: start: 20110823
  3. METHOTREXATE [Suspect]
     Route: 048

REACTIONS (4)
  - SKIN ULCER [None]
  - PHARYNGITIS STREPTOCOCCAL [None]
  - HERPES ZOSTER [None]
  - CELLULITIS [None]
